FAERS Safety Report 20773527 (Version 2)
Quarter: 2022Q4

REPORT INFORMATION
  Report Type: Spontaneous
  Country: JP (occurrence: JP)
  Receive Date: 20220502
  Receipt Date: 20221021
  Transmission Date: 20230113
  Serious: Yes (Other)
  Sender: FDA-Public Use
  Company Number: JP-UCBJ-CD202203416UCBPHAPROD

PATIENT
  Age: 19 Year
  Sex: Male

DRUGS (1)
  1. LEVETIRACETAM [Suspect]
     Active Substance: LEVETIRACETAM
     Indication: Epilepsy
     Dosage: 500 MILLIGRAM, 2X/DAY (BID)
     Route: 048
     Dates: start: 202201

REACTIONS (4)
  - Fall [Recovered/Resolved]
  - Back injury [Recovered/Resolved]
  - Limb injury [Recovered/Resolved]
  - Anger [Recovering/Resolving]

NARRATIVE: CASE EVENT DATE: 20220414
